FAERS Safety Report 4640030-8 (Version None)
Quarter: 2005Q2

REPORT INFORMATION
  Report Type: 
  Country: None (occurrence: None)
  Receive Date: 20050415
  Receipt Date: 20050415
  Transmission Date: 20051028
  Serious: Yes (Life-Threatening, Hospitalization)
  Sender: FDA-Public Use
  Company Number: None

PATIENT
  Age: 36 Year
  Sex: Female
  Weight: 49.8957 kg

DRUGS (3)
  1. LEVOXYL [Suspect]
     Indication: HYPERSENSITIVITY
     Dosage: .025  P.O. DAILY ORAL
     Route: 048
     Dates: start: 20050111, end: 20050412
  2. LEVOXYL [Concomitant]
  3. SYNTHROID [Concomitant]

REACTIONS (19)
  - ABDOMINAL PAIN [None]
  - AGITATION [None]
  - ANOREXIA [None]
  - BLOOD PRESSURE INCREASED [None]
  - DIARRHOEA [None]
  - DRUG HYPERSENSITIVITY [None]
  - HYPERTHYROIDISM [None]
  - HYPOTHYROIDISM [None]
  - LYMPHADENOPATHY [None]
  - MALAISE [None]
  - MYALGIA [None]
  - NAUSEA [None]
  - PALPITATIONS [None]
  - PYREXIA [None]
  - RASH [None]
  - RASH ERYTHEMATOUS [None]
  - TEMPERATURE INTOLERANCE [None]
  - THIRST [None]
  - URTICARIA [None]
